FAERS Safety Report 7979598-2 (Version None)
Quarter: 2011Q4

REPORT INFORMATION
  Report Type: 
  Country: None (occurrence: None)
  Receive Date: 20111214
  Receipt Date: 20111206
  Transmission Date: 20120403
  Serious: Yes (Hospitalization, Other)
  Sender: FDA-Public Use
  Company Number: FR-ABBOTT-11P-056-0859021-00

PATIENT
  Sex: Male

DRUGS (3)
  1. HUMIRA [Suspect]
     Indication: CROHN'S DISEASE
     Dates: start: 20110501
  2. CORTICOIDS NOS [Concomitant]
     Indication: CROHN'S DISEASE
     Dates: start: 20020101, end: 20060101
  3. CORTICOIDS NOS [Concomitant]
     Dates: start: 20110101, end: 20110815

REACTIONS (8)
  - PURULENT DISCHARGE [None]
  - DRUG RESISTANCE [None]
  - SUBILEUS [None]
  - VOMITING [None]
  - INTESTINAL DILATATION [None]
  - BACTERIAL INFECTION [None]
  - INTESTINAL STENOSIS [None]
  - PYREXIA [None]
